FAERS Safety Report 8177986-5 (Version None)
Quarter: 2012Q1

REPORT INFORMATION
  Report Type: 
  Country: None (occurrence: None)
  Receive Date: 20120130
  Receipt Date: 20110729
  Transmission Date: 20120608
  Serious: Yes (Hospitalization)
  Sender: FDA-Public Use
  Company Number: 038074

PATIENT
  Age: 55 Year
  Sex: Male
  Weight: 69 kg

DRUGS (2)
  1. OXCARBAZEPINE [Concomitant]
  2. KEPPRA [Suspect]
     Indication: EPILEPSY
     Dosage: (1500 MG, STARTED WITH 1500 MG DAILY ON 01/JAN/2006 ORAL)
     Route: 048
     Dates: start: 20070101

REACTIONS (1)
  - EPILEPSY [None]
